FAERS Safety Report 12502876 (Version 2)
Quarter: 2016Q3

REPORT INFORMATION
  Report Type: Spontaneous
  Country: HU (occurrence: HU)
  Receive Date: 20160628
  Receipt Date: 20160701
  Transmission Date: 20161109
  Serious: Yes (Death, Hospitalization, Other)
  Sender: FDA-Public Use
  Company Number: HU-ACTELION-A-CH2016-137789

PATIENT
  Age: 58 Year
  Sex: Female

DRUGS (2)
  1. TRACLEER [Suspect]
     Active Substance: BOSENTAN
     Indication: PULMONARY ARTERIAL HYPERTENSION
     Dosage: 125 MG, BID
     Route: 048
     Dates: start: 20090612, end: 20160612
  2. TRACLEER [Suspect]
     Active Substance: BOSENTAN
     Dosage: 62.5 MG, BID
     Route: 048
     Dates: start: 20090316, end: 20090611

REACTIONS (12)
  - Sepsis [Fatal]
  - Acute kidney injury [Unknown]
  - Atrial septal defect repair [Unknown]
  - Respiratory failure [Unknown]
  - Inflammatory marker increased [Fatal]
  - Diarrhoea [Unknown]
  - Renal function test abnormal [Unknown]
  - Metabolic acidosis [Fatal]
  - Pancreatitis [Unknown]
  - Nausea [Unknown]
  - Anuria [Unknown]
  - Haemodialysis [Unknown]

NARRATIVE: CASE EVENT DATE: 200911
